FAERS Safety Report 7358772-2 (Version None)
Quarter: 2011Q1

REPORT INFORMATION
  Report Type: 
  Country: None (occurrence: None)
  Receive Date: 20110317
  Receipt Date: 20110309
  Transmission Date: 20110831
  Serious: Yes (Hospitalization)
  Sender: FDA-Public Use
  Company Number: A0918166A

PATIENT
  Age: 67 Year
  Sex: Female
  Weight: 70.7 kg

DRUGS (4)
  1. PACLITAXEL [Suspect]
     Dosage: 80MGM2 CYCLIC
     Route: 042
     Dates: start: 20110301
  2. CYCLOPHOSPHAMIDE [Suspect]
     Dosage: 600MGM2 CYCLIC
     Route: 042
     Dates: end: 20110208
  3. PAZOPANIB [Suspect]
     Dosage: 800MG PER DAY
     Route: 048
     Dates: start: 20110301
  4. DOXORUBICIN HCL [Suspect]
     Dosage: 60MGM2 CYCLIC
     Route: 042
     Dates: end: 20110208

REACTIONS (1)
  - PULMONARY EMBOLISM [None]
